FAERS Safety Report 8062749-1 (Version None)
Quarter: 2012Q1

REPORT INFORMATION
  Report Type: 
  Country: None (occurrence: None)
  Receive Date: 20120106
  Receipt Date: 20111230
  Transmission Date: 20120608
  Serious: Yes (Other)
  Sender: FDA-Public Use
  Company Number: 2011028772

PATIENT
  Age: 81 Year
  Sex: Female
  Weight: 78.9259 kg

DRUGS (17)
  1. HIZENTRA [Suspect]
  2. ALBUTEROL [Concomitant]
  3. HIZENTRA [Suspect]
  4. SINGULAIR [Concomitant]
  5. HIZENTRA [Suspect]
     Indication: IMMUNODEFICIENCY COMMON VARIABLE
     Dosage: (12 G 1X/WEEK, 60 ML IN 3-4 SITES OVER 2 HOURS SUBCUTANEOUS), (4 GM 20 ML VIAL SUBCUTANEOUS), (4 GM
     Route: 058
     Dates: start: 20110323
  6. HIZENTRA [Suspect]
     Indication: IMMUNODEFICIENCY COMMON VARIABLE
     Dosage: (12 G 1X/WEEK, 60 ML IN 3-4 SITES OVER 2 HOURS SUBCUTANEOUS), (4 GM 20 ML VIAL SUBCUTANEOUS), (4 GM
     Route: 058
     Dates: start: 20111221
  7. HIZENTRA [Suspect]
     Indication: IMMUNODEFICIENCY COMMON VARIABLE
     Dosage: (12 G 1X/WEEK, 60 ML IN 3-4 SITES OVER 2 HOURS SUBCUTANEOUS), (4 GM 20 ML VIAL SUBCUTANEOUS), (4 GM
     Route: 058
     Dates: start: 20111019, end: 20111019
  8. HIZENTRA [Suspect]
     Indication: IMMUNODEFICIENCY COMMON VARIABLE
     Dosage: (12 G 1X/WEEK, 60 ML IN 3-4 SITES OVER 2 HOURS SUBCUTANEOUS), (4 GM 20 ML VIAL SUBCUTANEOUS), (4 GM
     Route: 058
     Dates: start: 20110323
  9. HIZENTRA [Suspect]
  10. TRAZODONE HCL [Concomitant]
  11. OXYBUTRIN (OXYBUTYNIN) [Concomitant]
  12. HIZENTRA [Suspect]
  13. DIOVAN [Concomitant]
  14. LOPERAMIDE [Concomitant]
  15. BISOPROLOL FUMARATE [Concomitant]
  16. ADVAIR DISKUS 100/50 [Concomitant]
  17. CARAFATE [Concomitant]

REACTIONS (3)
  - GASTROENTERITIS VIRAL [None]
  - UPPER RESPIRATORY TRACT INFECTION [None]
  - INJECTION SITE RASH [None]
